FAERS Safety Report 4847163-1 (Version None)
Quarter: 2005Q4

REPORT INFORMATION
  Report Type: 
  Country: None (occurrence: None)
  Receive Date: 20051205
  Receipt Date: 20051122
  Transmission Date: 20060501
  Serious: Yes (Other)
  Sender: FDA-Public Use
  Company Number: 2005152242

PATIENT
  Sex: Male

DRUGS (1)
  1. VIAGRA [Suspect]
     Indication: ERECTILE DYSFUNCTION

REACTIONS (4)
  - BLINDNESS TRANSIENT [None]
  - OPTIC ISCHAEMIC NEUROPATHY [None]
  - RETINAL HAEMORRHAGE [None]
  - VITREOUS FLOATERS [None]
